FAERS Safety Report 5605144-4 (Version None)
Quarter: 2008Q1

REPORT INFORMATION
  Report Type: 
  Country: None (occurrence: None)
  Receive Date: 20080123
  Receipt Date: 20070628
  Transmission Date: 20080703
  Serious: Yes (Death)
  Sender: FDA-Public Use
  Company Number: 6-29-2007-01

PATIENT
  Age: 85 Year
  Sex: Male
  Weight: 67 kg

DRUGS (2)
  1. SPS (R) SUSPENSION (SODIUM POLYSTYRENE SULFONATE) [Suspect]
     Indication: MEGACOLON
     Dosage: 15G, 1 DOSE, 049 OTHER MULTIPLE DOSES OVER THE YEARS.
  2. CAROLINA MEDICAL PRODUCTS COMPANY [Suspect]
     Dosage: GASTROENTERAL/NASOGASTR

REACTIONS (2)
  - GASTROINTESTINAL NECROSIS [None]
  - LARGE INTESTINE PERFORATION [None]
